FAERS Safety Report 8096361-5 (Version None)
Quarter: 2012Q1

REPORT INFORMATION
  Report Type: 
  Country: None (occurrence: None)
  Receive Date: 20120131
  Receipt Date: 20120124
  Transmission Date: 20120608
  Serious: Yes (Life-Threatening, Other)
  Sender: FDA-Public Use
  Company Number: PHHY2012TW006273

PATIENT
  Age: 61 Year
  Sex: Female

DRUGS (2)
  1. RAMIPRIL [Suspect]
     Indication: HYPERTENSION
  2. TISSUE PLASMINOGEN ACTIVATOR, RECOMBINATIVE [Interacting]
     Dosage: 0.9 MG/KG, (TOTAL OF 61 MG)

REACTIONS (11)
  - ASTHENIA [None]
  - COLD SWEAT [None]
  - VOMITING [None]
  - ABDOMINAL DISCOMFORT [None]
  - LOSS OF CONSCIOUSNESS [None]
  - BLOOD PRESSURE DECREASED [None]
  - ANAPHYLACTOID SHOCK [None]
  - ISCHAEMIC STROKE [None]
  - NAUSEA [None]
  - HEMIPARESIS [None]
  - DYSARTHRIA [None]
